FAERS Safety Report 5781118-8 (Version None)
Quarter: 2008Q2

REPORT INFORMATION
  Report Type: 
  Country: None (occurrence: None)
  Receive Date: 20080620
  Receipt Date: 20080610
  Transmission Date: 20081010
  Serious: Yes (Other)
  Sender: FDA-Public Use
  Company Number: US-PFIZER INC-2008050486

PATIENT
  Sex: Male
  Weight: 90.7 kg

DRUGS (6)
  1. CHANTIX [Suspect]
     Indication: SMOKING CESSATION THERAPY
     Dosage: TEXT:EVERY DAY
     Route: 048
  2. ZETIA [Concomitant]
     Dosage: DAILY DOSE:10MG-TEXT:DAILY
  3. DOXAZOSIN MESYLATE [Concomitant]
     Dosage: TEXT:ONE DAILY
  4. VITAMIN D [Concomitant]
  5. FISH OIL [Concomitant]
  6. NEURONTIN [Concomitant]
     Dosage: TEXT:ONE DAILY

REACTIONS (3)
  - ARTHRALGIA [None]
  - MUSCULAR WEAKNESS [None]
  - PAIN [None]
